FAERS Safety Report 12469958 (Version 1)
Quarter: 2016Q2

REPORT INFORMATION
  Report Type: Spontaneous
  Country: US (occurrence: US)
  Receive Date: 20160615
  Receipt Date: 20160615
  Transmission Date: 20160815
  Serious: No
  Sender: FDA-Public Use
  Company Number: US-BAYER-2016-116913

PATIENT
  Age: 60 Year
  Sex: Male
  Weight: 122.4 kg

DRUGS (3)
  1. MIRALAX [Suspect]
     Active Substance: POLYETHYLENE GLYCOL 3350
     Indication: COLONOSCOPY
     Dosage: UNK
     Route: 048
     Dates: start: 2015
  2. INSULIN [Concomitant]
     Active Substance: INSULIN NOS
  3. DULCOLAX (DOCUSATE SODIUM) [Concomitant]
     Active Substance: DOCUSATE SODIUM

REACTIONS (5)
  - Product use issue [None]
  - Product use issue [None]
  - Circumstance or information capable of leading to medication error [None]
  - Off label use [None]
  - Off label use [None]

NARRATIVE: CASE EVENT DATE: 2015
